FAERS Safety Report 8620657-9 (Version None)
Quarter: 2012Q3

REPORT INFORMATION
  Report Type: 
  Country: None (occurrence: None)
  Receive Date: 20120824
  Receipt Date: 20120820
  Transmission Date: 20120928
  Serious: Yes (Death)
  Sender: FDA-Public Use
  Company Number: US-ACTELION-A-US2012-67786

PATIENT
  Age: 83 Year
  Sex: Female
  Weight: 63.492 kg

DRUGS (8)
  1. HYDROCODONE BITARTRATE [Concomitant]
  2. HYDROCHLOROTHIAZIDE [Concomitant]
  3. PAREGORICO [Concomitant]
  4. REVATIO [Concomitant]
  5. ROPINIROLE [Concomitant]
  6. VENTAVIS [Suspect]
     Indication: PULMONARY ARTERIAL HYPERTENSION
     Dosage: 2.5 ?G, UNK
     Route: 055
     Dates: start: 20070101, end: 20070501
  7. ALLOPURINOL [Concomitant]
  8. DEMEROL [Concomitant]

REACTIONS (1)
  - PULMONARY ARTERIAL HYPERTENSION [None]
